FAERS Safety Report 6325344-8 (Version None)
Quarter: 2009Q3

REPORT INFORMATION
  Report Type: 
  Country: None (occurrence: None)
  Receive Date: 20090824
  Receipt Date: 20090720
  Transmission Date: 20100115
  Serious: No
  Sender: FDA-Public Use
  Company Number: US-ABBOTT-09P-163-0586824-00

PATIENT
  Sex: Female
  Weight: 56.75 kg

DRUGS (5)
  1. NIASPAN [Suspect]
     Indication: BLOOD TRIGLYCERIDES INCREASED
     Dates: start: 20090601
  2. ESTRACE [Concomitant]
     Indication: DRUG USE FOR UNKNOWN INDICATION
  3. TENORMIN [Concomitant]
     Indication: DRUG USE FOR UNKNOWN INDICATION
  4. UNKNOWN BETABLOCKER [Concomitant]
     Indication: DRUG USE FOR UNKNOWN INDICATION
  5. MVT [Concomitant]
     Indication: DRUG USE FOR UNKNOWN INDICATION

REACTIONS (2)
  - FLUSHING [None]
  - INCREASED APPETITE [None]
